FAERS Safety Report 4556816-4 (Version None)
Quarter: 2005Q1

REPORT INFORMATION
  Report Type: 
  Country: None (occurrence: None)
  Receive Date: 20050120
  Receipt Date: 20050111
  Transmission Date: 20050727
  Serious: Yes (Hospitalization)
  Sender: FDA-Public Use
  Company Number: GB-GLAXOSMITHKLINE-B0364571A

PATIENT
  Age: 67 Year
  Sex: Male

DRUGS (7)
  1. ASPIRIN [Suspect]
     Indication: MYOCARDIAL INFARCTION
     Dosage: 75MG PER DAY
     Route: 048
     Dates: start: 20031101, end: 20041201
  2. IBUPROFEN [Suspect]
  3. CLOPIDOGREL [Suspect]
     Indication: MYOCARDIAL INFARCTION
     Dosage: 75MG PER DAY
     Route: 048
     Dates: start: 20031101, end: 20041201
  4. RAMIPRIL [Concomitant]
     Indication: MYOCARDIAL INFARCTION
     Dosage: 10MG PER DAY
     Route: 048
     Dates: start: 20031101
  5. ATENOLOL [Concomitant]
     Indication: MYOCARDIAL INFARCTION
     Dosage: 50MG PER DAY
     Route: 048
     Dates: start: 20031101
  6. BENDROFLUAZIDE [Concomitant]
     Indication: BLOOD PRESSURE INCREASED
     Dosage: 2.5MG PER DAY
     Route: 048
     Dates: start: 20031101
  7. PRAVASTATIN [Concomitant]
     Indication: MYOCARDIAL INFARCTION
     Dosage: 40MG AT NIGHT
     Route: 048
     Dates: start: 20031101

REACTIONS (5)
  - DIARRHOEA [None]
  - DIZZINESS [None]
  - FAECES DISCOLOURED [None]
  - GASTRIC ULCER [None]
  - HAEMATEMESIS [None]
